FAERS Safety Report 6884676-5 (Version None)
Quarter: 2010Q3

REPORT INFORMATION
  Report Type: 
  Country: None (occurrence: None)
  Receive Date: 20100727
  Receipt Date: 20100720
  Transmission Date: 20110219
  Serious: Yes (Other)
  Sender: FDA-Public Use
  Company Number: DKLU1063762

PATIENT
  Age: 23 Year
  Sex: Female

DRUGS (4)
  1. SABRIL [Suspect]
     Indication: COMPLEX PARTIAL SEIZURES
     Dosage: 500 MG MILLIGRAM(S), 2 IN 1 D, ORAL
     Route: 048
     Dates: start: 20100712
  2. PHENOBARBITAL TAB [Concomitant]
  3. CLONAZEPAM [Concomitant]
  4. PROTONICS [Concomitant]

REACTIONS (3)
  - ASPIRATION [None]
  - HYPOTONIA [None]
  - LETHARGY [None]
